FAERS Safety Report 18314294 (Version 1)
Quarter: 2020Q3

REPORT INFORMATION
  Report Type: Spontaneous
  Country: US (occurrence: US)
  Receive Date: 20200925
  Receipt Date: 20200925
  Transmission Date: 20201103
  Serious: Yes (Death)
  Sender: FDA-Public Use
  Company Number: US-AKRON, INC.-2091184

PATIENT
  Age: 4 Year
  Sex: Male
  Weight: 21 kg

DRUGS (2)
  1. PHENYLEPHRINE HYDROCHLORIDE. [Suspect]
     Active Substance: PHENYLEPHRINE HYDROCHLORIDE
     Indication: HAEMORRHAGE
  2. FENTANYL CITRATE. [Suspect]
     Active Substance: FENTANYL CITRATE
     Route: 042

REACTIONS (2)
  - Off label use [Fatal]
  - Cardiac arrest [Fatal]
